FAERS Safety Report 17567379 (Version 3)
Quarter: 2020Q3

REPORT INFORMATION
  Report Type: Spontaneous
  Country: US (occurrence: US)
  Receive Date: 20200320
  Receipt Date: 20200818
  Transmission Date: 20201102
  Serious: Yes (Hospitalization)
  Sender: FDA-Public Use
  Company Number: US-VERTEX PHARMACEUTICALS-2020-000219

PATIENT
  Age: 13 Year
  Sex: Female

DRUGS (14)
  1. AMOXCLAV HEXAL [Concomitant]
  2. CEFDINIR. [Concomitant]
     Active Substance: CEFDINIR
  3. CLINDAMYCIN. [Concomitant]
     Active Substance: CLINDAMYCIN
  4. APAP [Concomitant]
     Active Substance: ACETAMINOPHEN
  5. SMZ?TMP [Concomitant]
     Active Substance: SULFAMETHOXAZOLE\TRIMETHOPRIM
  6. TRIKAFTA [Suspect]
     Active Substance: ELEXACAFTOR\IVACAFTOR\TEZACAFTOR
     Indication: CYSTIC FIBROSIS
     Dosage: 2 TAB (100 MG ELEXACAFTOR/ 50 MG TEZACAFTOR/ 75 MG IVACAFTOR) PM AND 1 TAB (150 MG IVACAFTOR) PM
     Route: 048
     Dates: start: 20191211
  7. PROVENTIL HFA [SALBUTAMOL] [Concomitant]
  8. METHYLPRED [Concomitant]
     Active Substance: METHYLPREDNISOLONE
  9. FLUTICASONE. [Concomitant]
     Active Substance: FLUTICASONE
     Route: 045
  10. PREDNISONE. [Concomitant]
     Active Substance: PREDNISONE
  11. VITAMIN D3 [Concomitant]
     Active Substance: CHOLECALCIFEROL
  12. CREON [Concomitant]
     Active Substance: PANCRELIPASE AMYLASE\PANCRELIPASE LIPASE\PANCRELIPASE PROTEASE
  13. MIRALAX [Concomitant]
     Active Substance: POLYETHYLENE GLYCOL 3350
  14. RANITIDINE. [Concomitant]
     Active Substance: RANITIDINE

REACTIONS (3)
  - Sinus operation [Recovering/Resolving]
  - Adenotonsillectomy [Recovering/Resolving]
  - Bronchoscopy [Recovering/Resolving]

NARRATIVE: CASE EVENT DATE: 20200203
